FAERS Safety Report 24969499 (Version 1)
Quarter: 2025Q1

REPORT INFORMATION
  Report Type: Report from Study
  Country: US (occurrence: US)
  Receive Date: 20250214
  Receipt Date: 20250214
  Transmission Date: 20250409
  Serious: Yes (Hospitalization)
  Sender: ABBVIE
  Company Number: US-ABBVIE-6128375

PATIENT
  Age: 63 Year
  Sex: Female

DRUGS (1)
  1. SKYRIZI [Suspect]
     Active Substance: RISANKIZUMAB-RZAA
     Indication: Psoriasis
     Route: 058
     Dates: start: 20240228

REACTIONS (8)
  - Head injury [Unknown]
  - Arthritis [Unknown]
  - Pneumonia [Recovered/Resolved]
  - Fall [Recovered/Resolved]
  - Immune system disorder [Unknown]
  - Blood viscosity decreased [Unknown]
  - Respiratory syncytial virus infection [Recovered/Resolved]
  - Drug ineffective [Unknown]

NARRATIVE: CASE EVENT DATE: 20250101
